FAERS Safety Report 15011927 (Version 1)
Quarter: 2018Q2

REPORT INFORMATION
  Report Type: Spontaneous
  Country: DE (occurrence: DE)
  Receive Date: 20180614
  Receipt Date: 20180614
  Transmission Date: 20180711
  Serious: Yes (Hospitalization)
  Sender: FDA-Public Use
  Company Number: DE-BAUSCH-BL-2018-016806

PATIENT
  Age: 11 Year
  Sex: Male
  Weight: 23 kg

DRUGS (1)
  1. NITOMAN [Suspect]
     Active Substance: TETRABENAZINE
     Indication: CHOREOATHETOSIS
     Dosage: WEEKLY DOSE INCREASE BY 12.5 MG
     Route: 048
     Dates: start: 20170914, end: 20171006

REACTIONS (4)
  - Restlessness [Recovered/Resolved]
  - Drug eruption [Recovered/Resolved]
  - Fatigue [Recovered/Resolved]
  - Tic [Recovered/Resolved]

NARRATIVE: CASE EVENT DATE: 20171006
